FAERS Safety Report 7338524-X (Version None)
Quarter: 2011Q1

REPORT INFORMATION
  Report Type: 
  Country: None (occurrence: None)
  Receive Date: 20110210
  Receipt Date: 20101201
  Transmission Date: 20110831
  Serious: No
  Sender: FDA-Public Use
  Company Number: 1000017542

PATIENT
  Age: 59 Year
  Sex: Female

DRUGS (4)
  1. LASIX [Concomitant]
  2. POTASSIUM (POTASSIUM) (POTASSIUM) [Concomitant]
  3. LISINOPRIL [Concomitant]
  4. SAVELLA [Suspect]
     Indication: FIBROMYALGIA
     Dosage: 12.5 MG (12.5 MG, 1 IN 1 D), ORAL
     Route: 048
     Dates: start: 20101119, end: 20101129

REACTIONS (5)
  - CHEST DISCOMFORT [None]
  - DRY MOUTH [None]
  - PALPITATIONS [None]
  - HEART RATE INCREASED [None]
  - HEADACHE [None]
